FAERS Safety Report 6843535-4 (Version None)
Quarter: 2010Q3

REPORT INFORMATION
  Report Type: 
  Country: None (occurrence: None)
  Receive Date: 20100712
  Receipt Date: 20100615
  Transmission Date: 20110219
  Serious: Yes (Hospitalization)
  Sender: FDA-Public Use
  Company Number: ALDI-JP-2010-0035

PATIENT
  Sex: Male

DRUGS (1)
  1. ALDOMET [Suspect]
     Indication: HYPERTENSION
     Dosage: 250 MG PER ORAL
     Route: 048
     Dates: start: 20100515, end: 20100606

REACTIONS (2)
  - BLOOD CREATINE PHOSPHOKINASE INCREASED [None]
  - PYREXIA [None]
